FAERS Safety Report 4525767-3 (Version None)
Quarter: 2004Q4

REPORT INFORMATION
  Report Type: 
  Country: None (occurrence: None)
  Receive Date: 20041116
  Receipt Date: 20041008
  Transmission Date: 20050328
  Serious: Yes (Hospitalization)
  Sender: FDA-Public Use
  Company Number: S04-USA-06699-01

PATIENT
  Age: 81 Year
  Sex: Female

DRUGS (10)
  1. NAMENDA [Suspect]
     Indication: AMNESIA
     Dosage: 10 MG BID PO
     Route: 048
     Dates: start: 20040905
  2. NAMENDA [Suspect]
     Indication: AMNESIA
     Dosage: 5 MG QD PO
     Route: 048
     Dates: start: 20040815, end: 20040821
  3. NAMENDA [Suspect]
     Indication: AMNESIA
     Dosage: 5 MG BID PO
     Route: 048
     Dates: start: 20040822, end: 20040828
  4. NAMENDA [Suspect]
     Indication: AMNESIA
     Dosage: 15 MG QD PO
     Route: 048
     Dates: start: 20040829, end: 20040904
  5. NORVASC [Concomitant]
  6. ARICEPT [Concomitant]
  7. ASPIRIN [Concomitant]
  8. COZAAR [Concomitant]
  9. QUINIDINE SULFATE [Concomitant]
  10. GINKO BILOBA [Concomitant]

REACTIONS (5)
  - BLOOD PRESSURE INCREASED [None]
  - COLD SWEAT [None]
  - HYPOTENSION [None]
  - NAUSEA [None]
  - VOMITING [None]
